FAERS Safety Report 6739806-2 (Version None)
Quarter: 2010Q2

REPORT INFORMATION
  Report Type: 
  Country: None (occurrence: None)
  Receive Date: 20100525
  Receipt Date: 20100512
  Transmission Date: 20101027
  Serious: Yes (Hospitalization, Other)
  Sender: FDA-Public Use
  Company Number: PHNU2007DE01769

PATIENT
  Sex: Female

DRUGS (2)
  1. LEPONEX [Suspect]
     Indication: PSYCHOTIC DISORDER
     Dosage: 150 MG TO 600 MG/DAY
     Route: 048
     Dates: start: 19950101, end: 20010101
  2. SOLIAN [Concomitant]
     Dates: start: 20010101

REACTIONS (6)
  - DRUG WITHDRAWAL SYNDROME [None]
  - FACIAL PAIN [None]
  - HEADACHE [None]
  - HYPERHIDROSIS [None]
  - PAIN [None]
  - PHOTOSENSITIVITY REACTION [None]
